FAERS Safety Report 11926391 (Version 1)
Quarter: 2016Q1

REPORT INFORMATION
  Report Type: Other
  Country: GB (occurrence: GB)
  Receive Date: 20160119
  Receipt Date: 20160119
  Transmission Date: 20160526
  Serious: Yes (Disabling)
  Sender: FDA-Public Use
  Company Number: GB-CIPLA LTD.-2016GB00157

PATIENT

DRUGS (6)
  1. ALENDRONIC ACID [Concomitant]
     Active Substance: ALENDRONIC ACID
     Dosage: 1 DF,WEEKLY
     Route: 065
     Dates: start: 20150701
  2. CALCICHEW D3 [Concomitant]
     Active Substance: CALCIUM\CHOLECALCIFEROL
     Dosage: 1 DF, BID,6 DAYS  A WEEK
     Route: 065
     Dates: start: 20150701
  3. QUININE [Concomitant]
     Active Substance: QUININE
     Dosage: 1 DF, QD,HALF AN HOUR BEFORE BEDTIME.
     Route: 065
     Dates: start: 20150701
  4. TRAMADOL. [Concomitant]
     Active Substance: TRAMADOL
     Dosage: 1 DF, BID
     Route: 065
     Dates: start: 20150701
  5. SIMVASTATIN. [Concomitant]
     Active Substance: SIMVASTATIN
     Dosage: 1 DF, QD, HALF AN HOUR BEFORE  BEDTIME
     Route: 065
     Dates: start: 20150701
  6. AMLODIPINE [Suspect]
     Active Substance: AMLODIPINE BESYLATE
     Route: 065

REACTIONS (1)
  - Swollen tongue [Recovering/Resolving]

NARRATIVE: CASE EVENT DATE: 20151229
